FAERS Safety Report 9437807 (Version 1)
Quarter: 2013Q3

REPORT INFORMATION
  Report Type: Spontaneous
  Country: US (occurrence: US)
  Receive Date: 20130802
  Receipt Date: 20130802
  Transmission Date: 20140515
  Serious: No
  Sender: FDA-Public Use
  Company Number: US-BRISTOL-MYERS SQUIBB COMPANY-17463621

PATIENT
  Sex: Female

DRUGS (1)
  1. COUMADIN TABS 4 MG [Suspect]
     Dosage: COUMADIN4MG, 1 AND HALF TABS, ONE DAY A WEEK, CHANGED TO 2 TABS/DAY.?8MG 1 DAY/WK,6MG QD
     Route: 048

REACTIONS (1)
  - International normalised ratio decreased [Unknown]
